FAERS Safety Report 9454912 (Version 1)
Quarter: 2013Q3

REPORT INFORMATION
  Report Type: Spontaneous
  Country: US (occurrence: US)
  Receive Date: 20130813
  Receipt Date: 20130813
  Transmission Date: 20140515
  Serious: Yes (Hospitalization)
  Sender: FDA-Public Use
  Company Number: US-BIOGENIDEC-2012BI045926

PATIENT
  Age: 38 Year
  Sex: Female

DRUGS (4)
  1. TYSABRI [Suspect]
     Indication: MULTIPLE SCLEROSIS
     Route: 042
     Dates: start: 20120305, end: 20120918
  2. TOPAMAX [Concomitant]
  3. CYMBALTA [Concomitant]
  4. OXYBUTYNIN [Concomitant]

REACTIONS (1)
  - Umbilical cord abnormality [Unknown]
